FAERS Safety Report 10829158 (Version 1)
Quarter: 2015Q1

REPORT INFORMATION
  Report Type: Spontaneous
  Country: FR (occurrence: FR)
  Receive Date: 20150219
  Receipt Date: 20150219
  Transmission Date: 20150721
  Serious: Yes (Other)
  Sender: FDA-Public Use
  Company Number: FR-ASTRAZENECA-2015SE14305

PATIENT
  Age: 17176 Day
  Sex: Female

DRUGS (6)
  1. XEROQUEL [Suspect]
     Active Substance: QUETIAPINE FUMARATE
     Route: 048
     Dates: start: 20150110
  2. SERESTA [Suspect]
     Active Substance: OXAZEPAM
     Route: 048
     Dates: start: 20150110
  3. SERESTA [Suspect]
     Active Substance: OXAZEPAM
     Route: 048
  4. XEROQUEL [Suspect]
     Active Substance: QUETIAPINE FUMARATE
     Route: 048
  5. NOCTAMIDE [Suspect]
     Active Substance: LORMETAZEPAM
     Route: 048
     Dates: start: 20150110
  6. NOCTAMIDE [Suspect]
     Active Substance: LORMETAZEPAM
     Route: 048

REACTIONS (4)
  - Somnolence [Recovered/Resolved]
  - Overdose [Recovered/Resolved]
  - Vertigo [Recovered/Resolved]
  - Localised oedema [Recovered/Resolved]

NARRATIVE: CASE EVENT DATE: 20150110
